FAERS Safety Report 5567093-X (Version None)
Quarter: 2007Q4

REPORT INFORMATION
  Report Type: 
  Country: None (occurrence: None)
  Receive Date: 20071219
  Receipt Date: 20060515
  Transmission Date: 20080405
  Serious: Yes (Death, Congenital Anomaly)
  Sender: FDA-Public Use
  Company Number: BR-ROCHE-448020

PATIENT
  Age: 4 Year
  Sex: Female

DRUGS (1)
  1. RIVOTRIL [Suspect]
     Indication: DEPRESSION
     Dates: start: 19970101

REACTIONS (2)
  - CARDIAC DISORDER [None]
  - TRISOMY 21 [None]
